FAERS Safety Report 25002145 (Version 1)
Quarter: 2025Q1

REPORT INFORMATION
  Report Type: Spontaneous
  Country: FI (occurrence: FI)
  Receive Date: 20250224
  Receipt Date: 20250224
  Transmission Date: 20250409
  Serious: Yes (Disabling)
  Sender: JOHNSON AND JOHNSON
  Company Number: None

PATIENT
  Age: 32 Year
  Sex: Female

DRUGS (4)
  1. PALIPERIDONE PALMITATE [Suspect]
     Active Substance: PALIPERIDONE PALMITATE
     Indication: Product used for unknown indication
     Route: 065
  2. PALIPERIDONE PALMITATE [Suspect]
     Active Substance: PALIPERIDONE PALMITATE
  3. PALIPERIDONE PALMITATE [Suspect]
     Active Substance: PALIPERIDONE PALMITATE
  4. ESCITALOPRAM [Concomitant]
     Active Substance: ESCITALOPRAM OXALATE
     Indication: Product used for unknown indication
     Route: 065

REACTIONS (13)
  - Emotional poverty [Unknown]
  - Disturbance in attention [Unknown]
  - Feeling abnormal [Unknown]
  - Weight increased [Unknown]
  - Disability [Unknown]
  - Galactorrhoea [Unknown]
  - Depression [Unknown]
  - Anxiety [Unknown]
  - Memory impairment [Unknown]
  - Irritability [Unknown]
  - Apathy [Unknown]
  - Initial insomnia [Unknown]
  - Anhedonia [Unknown]
